FAERS Safety Report 21179420 (Version 3)
Quarter: 2022Q4

REPORT INFORMATION
  Report Type: Report from Study
  Country: US (occurrence: US)
  Receive Date: 20220805
  Receipt Date: 20221017
  Transmission Date: 20230113
  Serious: Yes (Hospitalization, Other)
  Sender: FDA-Public Use
  Company Number: US-PFIZER INC-PV202200036389

PATIENT
  Age: 69 Year
  Sex: Female

DRUGS (14)
  1. SILDENAFIL [Suspect]
     Active Substance: SILDENAFIL
     Indication: Pulmonary hypertension
     Dosage: 60 MILLIGRAM, TID (60 MG, 3X/DAY)
     Route: 065
     Dates: start: 201911
  2. SILDENAFIL [Suspect]
     Active Substance: SILDENAFIL
     Dosage: 60 MILLIGRAM, TID (60 MG, 3X/DAY)
     Route: 065
     Dates: start: 20151114
  3. SILDENAFIL [Suspect]
     Active Substance: SILDENAFIL
     Dosage: 60 MILLIGRAM, TID
     Route: 065
     Dates: start: 20150425
  4. SILDENAFIL [Suspect]
     Active Substance: SILDENAFIL
     Dosage: 60 MILLIGRAM, TID (60 MG, 3X/DAY)
     Route: 065
     Dates: start: 20151125
  5. AMBRISENTAN [Suspect]
     Active Substance: AMBRISENTAN
     Indication: Pulmonary hypertension
     Dosage: 10 MILLIGRAM, QD (10 MG, 1X/DAY)
     Route: 065
     Dates: start: 20120830
  6. AMBRISENTAN [Suspect]
     Active Substance: AMBRISENTAN
     Dosage: 10 MILLIGRAM, QD (10 MG, 1X/DAY)
     Route: 065
     Dates: start: 20160202
  7. UPTRAVI [Suspect]
     Active Substance: SELEXIPAG
     Indication: Product used for unknown indication
     Dosage: UNK
     Route: 065
     Dates: start: 20210710
  8. REMODULIN [Suspect]
     Active Substance: TREPROSTINIL
     Indication: Pulmonary hypertension
     Dosage: 21.2 MILLIGRAM, (21.2 MG, CYCLIC (Q1 MINUTE)
     Route: 065
     Dates: start: 20220308
  9. REMODULIN [Suspect]
     Active Substance: TREPROSTINIL
     Dosage: 29.1 MILLIGRAM ,(CYCLIC (Q1 MINUTE)
     Route: 065
     Dates: start: 20220315
  10. REMODULIN [Suspect]
     Active Substance: TREPROSTINIL
     Dosage: 41 MILLIGRAM, (CYCLIC (Q1 MINUTE)
     Route: 065
     Dates: start: 202203
  11. REMODULIN [Suspect]
     Active Substance: TREPROSTINIL
     Dosage: 41 NANOGRAM, (CYCLIC (Q1 MINUTE)
     Route: 065
     Dates: start: 20220214
  12. REMODULIN [Suspect]
     Active Substance: TREPROSTINIL
     Dosage: 21.2 MILLIGRAM. (Q1 MINUTE)
     Route: 065
     Dates: start: 20220308
  13. REMODULIN [Suspect]
     Active Substance: TREPROSTINIL
     Dosage: 42 MILLIGRAM, (Q1 MINUTE)
     Route: 065
  14. LASIX [Concomitant]
     Active Substance: FUROSEMIDE
     Indication: Product used for unknown indication
     Dosage: UNK
     Route: 065

REACTIONS (15)
  - Cardiac disorder [Unknown]
  - Lung disorder [Unknown]
  - Dyspnoea [Unknown]
  - Heart rate increased [Not Recovered/Not Resolved]
  - Oxygen saturation decreased [Not Recovered/Not Resolved]
  - Hypotension [Unknown]
  - Intra-abdominal fluid collection [Not Recovered/Not Resolved]
  - Tachypnoea [Unknown]
  - Infusion site pain [Unknown]
  - Pain [Unknown]
  - Infusion site swelling [Unknown]
  - Oxygen consumption increased [Unknown]
  - Asthenia [Unknown]
  - Dyspnoea exertional [Unknown]
  - Dizziness [Unknown]

NARRATIVE: CASE EVENT DATE: 20220601
